FAERS Safety Report 25617520 (Version 1)
Quarter: 2025Q3

REPORT INFORMATION
  Report Type: Spontaneous
  Country: US (occurrence: US)
  Receive Date: 20250729
  Receipt Date: 20250729
  Transmission Date: 20251020
  Serious: No
  Sender: BIOMARIN
  Company Number: US-BIOMARINAP-US-2025-167648

PATIENT
  Sex: Male

DRUGS (4)
  1. PALYNZIQ [Suspect]
     Active Substance: PEGVALIASE-PQPZ
     Indication: Phenylketonuria
     Dosage: 20 MILLIGRAM, QD
  2. PALYNZIQ [Suspect]
     Active Substance: PEGVALIASE-PQPZ
  3. PALYNZIQ [Suspect]
     Active Substance: PEGVALIASE-PQPZ
  4. PALYNZIQ [Suspect]
     Active Substance: PEGVALIASE-PQPZ
     Dosage: 20 MILLIGRAM, QW

REACTIONS (1)
  - Arthralgia [Recovered/Resolved]
